FAERS Safety Report 11958696 (Version 2)
Quarter: 2016Q1

REPORT INFORMATION
  Report Type: Spontaneous
  Country: DE (occurrence: DE)
  Receive Date: 20160126
  Receipt Date: 20160220
  Transmission Date: 20160526
  Serious: Yes (Death, Life-Threatening, Other)
  Sender: FDA-Public Use
  Company Number: DE-ASTRAZENECA-2015SE31188

PATIENT
  Age: 22537 Day
  Sex: Male

DRUGS (1)
  1. BRETARIS [Suspect]
     Active Substance: ACLIDINIUM BROMIDE
     Indication: CHRONIC OBSTRUCTIVE PULMONARY DISEASE
     Route: 055
     Dates: start: 20130508, end: 20150108

REACTIONS (8)
  - Haemoglobin decreased [Fatal]
  - Respiratory acidosis [Unknown]
  - Metabolic acidosis [Unknown]
  - Cardiac failure [Fatal]
  - Sepsis [Unknown]
  - Acute kidney injury [Unknown]
  - Weight decreased [Unknown]
  - Hepatic cirrhosis [Unknown]

NARRATIVE: CASE EVENT DATE: 20150108
